FAERS Safety Report 10403049 (Version 4)
Quarter: 2015Q2

REPORT INFORMATION
  Report Type: Report from Study
  Country: US (occurrence: US)
  Receive Date: 20140822
  Receipt Date: 20150515
  Transmission Date: 20150821
  Serious: Yes (Hospitalization)
  Sender: FDA-Public Use
  Company Number: US-SA-2014SA061174

PATIENT
  Age: 53 Year
  Sex: Female

DRUGS (1)
  1. AUBAGIO [Suspect]
     Active Substance: TERIFLUNOMIDE
     Indication: MULTIPLE SCLEROSIS
     Route: 048
     Dates: start: 20130205

REACTIONS (11)
  - Gait disturbance [Unknown]
  - Dysstasia [Not Recovered/Not Resolved]
  - Tremor [Unknown]
  - Pyrexia [Unknown]
  - Malaise [Unknown]
  - Anger [Unknown]
  - Crying [Unknown]
  - Psychomotor skills impaired [Unknown]
  - Dysarthria [Unknown]
  - Dysgraphia [Unknown]
  - White blood cell count increased [Unknown]
